FAERS Safety Report 7609267-X (Version None)
Quarter: 2011Q3

REPORT INFORMATION
  Report Type: 
  Country: None (occurrence: None)
  Receive Date: 20110714
  Receipt Date: 20110705
  Transmission Date: 20111222
  Serious: Yes (Hospitalization)
  Sender: FDA-Public Use
  Company Number: MX-GILEAD-2011-0041347

PATIENT
  Sex: Male
  Weight: 63 kg

DRUGS (2)
  1. TMC278 (RILPIVIRINE) [Suspect]
     Indication: HIV INFECTION
     Route: 048
     Dates: start: 20090108
  2. TRUVADA [Suspect]
     Indication: HIV INFECTION
     Route: 048
     Dates: start: 20090108

REACTIONS (7)
  - PYLORIC STENOSIS [None]
  - PILONIDAL CYST [None]
  - WEIGHT DECREASED [None]
  - ORAL HERPES [None]
  - DIARRHOEA [None]
  - RASH [None]
  - UPPER RESPIRATORY TRACT INFECTION [None]
